FAERS Safety Report 9115280 (Version 1)
Quarter: 2013Q1

REPORT INFORMATION
  Report Type: Spontaneous
  Country: US (occurrence: US)
  Receive Date: 20130225
  Receipt Date: 20130225
  Transmission Date: 20140127
  Serious: Yes (Disabling)
  Sender: FDA-Public Use
  Company Number: PHEH2013US004500

PATIENT
  Sex: Female

DRUGS (5)
  1. DIOVAN [Suspect]
     Dosage: 1 DF, QD (320 MG)
     Route: 048
     Dates: start: 2010
  2. CARVEDILOL [Concomitant]
  3. GUANIDINE [Concomitant]
  4. GLIPIZIDE [Concomitant]
  5. LANTID [Concomitant]

REACTIONS (5)
  - Blindness [Unknown]
  - Skin disorder [Unknown]
  - Hair growth abnormal [Unknown]
  - Nail growth abnormal [Unknown]
  - Diarrhoea [Unknown]
